FAERS Safety Report 8595884 (Version 3)
Quarter: 2013Q4

REPORT INFORMATION
  Report Type: Spontaneous
  Country: US (occurrence: US)
  Receive Date: 20120605
  Receipt Date: 20131129
  Transmission Date: 20140711
  Serious: Yes (Other)
  Sender: FDA-Public Use
  Company Number: US-ASTRAZENECA-2012SE34481

PATIENT
  Age: 46 Year
  Sex: Female

DRUGS (16)
  1. NEXIUM [Suspect]
     Indication: DYSPEPSIA
     Route: 048
     Dates: start: 20040928
  2. NEXIUM [Suspect]
     Indication: GASTROOESOPHAGEAL REFLUX DISEASE
     Route: 048
     Dates: start: 20040928
  3. NEXIUM [Suspect]
     Indication: DYSPEPSIA
     Dosage: ONCE A DAY
     Route: 048
     Dates: start: 2005
  4. NEXIUM [Suspect]
     Indication: GASTROOESOPHAGEAL REFLUX DISEASE
     Dosage: ONCE A DAY
     Route: 048
     Dates: start: 2005
  5. PROTONIX/ PANTOPRAZOLE [Concomitant]
     Route: 048
  6. PROTONIX/ PANTOPRAZOLE [Concomitant]
     Route: 048
     Dates: start: 20070726
  7. PREVACID [Concomitant]
     Route: 048
  8. PEPTO-BISMOL [Concomitant]
  9. CHOLESTYRAMINE [Concomitant]
  10. SUNMARK COMPLETE VITAMIN [Concomitant]
  11. ZANAFLEX [Concomitant]
  12. ATENOLOL [Concomitant]
  13. KLONOPIN [Concomitant]
  14. PANTOPRAZOLE SODIUM [Concomitant]
     Route: 048
  15. DEPAKOTE [Concomitant]
     Indication: CONVULSION
     Route: 048
  16. PRILOSEC [Concomitant]

REACTIONS (5)
  - Convulsion [Unknown]
  - Osteoporosis [Unknown]
  - Glaucoma [Unknown]
  - Arthritis [Unknown]
  - Multiple fractures [Unknown]
